FAERS Safety Report 9350806 (Version 3)
Quarter: 2013Q3

REPORT INFORMATION
  Report Type: Report from Study
  Country: FR (occurrence: FR)
  Receive Date: 20130617
  Receipt Date: 20130919
  Transmission Date: 20140515
  Serious: Yes (Death, Other)
  Sender: FDA-Public Use
  Company Number: FR-MPIJNJ-2013-03118

PATIENT
  Sex: 0

DRUGS (3)
  1. VELCADE [Suspect]
     Indication: PLASMA CELL MYELOMA
     Dosage: 2.2 MG, UNK
     Route: 042
     Dates: start: 20130415, end: 20130418
  2. DEXAMETHASONE [Suspect]
     Indication: PLASMA CELL MYELOMA
     Dosage: 20 MG, UNK
     Route: 048
     Dates: start: 20130415, end: 20130418
  3. MORPHINE [Concomitant]
     Indication: PALLIATIVE CARE
     Dosage: 2.4 G, UNK
     Route: 042
     Dates: start: 20130421, end: 20130421

REACTIONS (2)
  - Cardiogenic shock [Fatal]
  - Cardiac amyloidosis [Fatal]
